FAERS Safety Report 22341439 (Version 1)
Quarter: 2023Q2

REPORT INFORMATION
  Report Type: Spontaneous
  Country: US (occurrence: US)
  Receive Date: 20230518
  Receipt Date: 20230518
  Transmission Date: 20230721
  Serious: No
  Sender: FDA-Public Use
  Company Number: US-GALDERMA-US2023006137

PATIENT

DRUGS (5)
  1. PROACTIV MD ADAPALENE ACNE TREATMENT [Suspect]
     Active Substance: ADAPALENE
     Indication: Acne
     Dosage: 1 DOSAGE FORM, QD,  ALL OVER THE FACE, OVER A DROP BUT LESS THAN A PEA SIZE
     Route: 061
     Dates: start: 2020
  2. PROACTIV MD DAILY OIL CONTROL SPF 30 [Suspect]
     Active Substance: AVOBENZONE\OCTISALATE\OCTOCRYLENE
     Indication: Acne
     Dosage: 1 DOSAGE FORM, BID, ALL OVER THE FACE, 2 FINGERS
     Route: 061
     Dates: start: 2020
  3. COSMETICS [Concomitant]
     Active Substance: COSMETICS
     Indication: Acne
     Dosage: 1 DOSAGE FORM, BID, ALL OVER THE FACE
     Route: 061
     Dates: start: 2020
  4. PROACTIV DEEP CLEANSING BODY WASH [Concomitant]
     Active Substance: SALICYLIC ACID
     Indication: Acne
     Dosage: 1 DOSAGE FORM, BID, ALL OVER THE FACE
     Route: 061
     Dates: start: 2020
  5. Proactiv Redness Relief Serum [Concomitant]
     Indication: Acne
     Dosage: 1 DOSAGE FORM, BID, ALL OVER THE FACE, PEA SIZE
     Route: 061
     Dates: start: 2020

REACTIONS (1)
  - Drug ineffective [Unknown]
